FAERS Safety Report 13076463 (Version 1)
Quarter: 2016Q4

REPORT INFORMATION
  Report Type: Spontaneous
  Country: US (occurrence: US)
  Receive Date: 20161230
  Receipt Date: 20161230
  Transmission Date: 20170207
  Serious: Yes (Other)
  Sender: FDA-Public Use
  Company Number: US-JNJFOC-20161223652

PATIENT
  Age: 7 Decade
  Sex: Male

DRUGS (5)
  1. VITAMIN D3 [Concomitant]
     Active Substance: CHOLECALCIFEROL
     Route: 065
  2. LEVAQUIN [Suspect]
     Active Substance: LEVOFLOXACIN
     Indication: BRONCHITIS
     Dosage: THROUGH A BIG SYRINGE TWICE THROUGH A PORT, 2 MINUTES APART, 7 MONTHS AGO
     Route: 042
     Dates: start: 2016, end: 2016
  3. XANAX [Concomitant]
     Active Substance: ALPRAZOLAM
     Indication: ANXIETY
     Route: 065
  4. VITAMIN C [Concomitant]
     Active Substance: ASCORBIC ACID
     Route: 065
  5. LEVOFLOXACIN. [Suspect]
     Active Substance: LEVOFLOXACIN
     Indication: BRONCHITIS
     Route: 048
     Dates: start: 2016, end: 2016

REACTIONS (27)
  - Cardiac flutter [Unknown]
  - Blood testosterone abnormal [Unknown]
  - Paraesthesia [Unknown]
  - Malaise [Unknown]
  - Dry eye [Unknown]
  - Unevaluable event [Unknown]
  - Overdose [Unknown]
  - Confusional state [Not Recovered/Not Resolved]
  - Bone pain [Not Recovered/Not Resolved]
  - Hypersomnia [Not Recovered/Not Resolved]
  - Contusion [Unknown]
  - Swelling face [Unknown]
  - Fatigue [Not Recovered/Not Resolved]
  - Eye pain [Unknown]
  - Asthenia [Not Recovered/Not Resolved]
  - Angina pectoris [Unknown]
  - Rash pustular [Unknown]
  - Gastrointestinal sounds abnormal [Not Recovered/Not Resolved]
  - Feeling abnormal [Unknown]
  - Infrequent bowel movements [Not Recovered/Not Resolved]
  - Abdominal pain upper [Unknown]
  - Nausea [Not Recovered/Not Resolved]
  - Thrombosis [Recovered/Resolved]
  - Pain in extremity [Not Recovered/Not Resolved]
  - Visual impairment [Recovered/Resolved]
  - Eye disorder [Not Recovered/Not Resolved]
  - Adverse event [Unknown]

NARRATIVE: CASE EVENT DATE: 2016
